FAERS Safety Report 4947256-4 (Version None)
Quarter: 2006Q1

REPORT INFORMATION
  Report Type: 
  Country: None (occurrence: None)
  Receive Date: 20060313
  Receipt Date: 20060301
  Transmission Date: 20060701
  Serious: Yes (Life-Threatening, Hospitalization)
  Sender: FDA-Public Use
  Company Number: S06-USA-00721-01

PATIENT
  Age: 42 Year
  Sex: Male

DRUGS (3)
  1. CAMPRAL [Suspect]
     Indication: ALCOHOLISM
     Dosage: 666 MG TID PO
     Route: 048
     Dates: start: 20060101, end: 20060127
  2. AMBIEN [Suspect]
  3. LOPRESSOR [Concomitant]

REACTIONS (13)
  - ALCOHOLISM [None]
  - CARDIAC ARREST [None]
  - CARDIAC ENZYMES INCREASED [None]
  - COMA [None]
  - DRUG INEFFECTIVE [None]
  - DRUG INTERACTION [None]
  - ELECTROENCEPHALOGRAM ABNORMAL [None]
  - FALL [None]
  - GLUCOSE TOLERANCE IMPAIRED [None]
  - PAIN [None]
  - SELF-MEDICATION [None]
  - VENTRICULAR FIBRILLATION [None]
  - VENTRICULAR TACHYCARDIA [None]
